FAERS Safety Report 9737260 (Version 1)
Quarter: 2013Q4

REPORT INFORMATION
  Report Type: Spontaneous
  Country: GB (occurrence: GB)
  Receive Date: 20131206
  Receipt Date: 20131206
  Transmission Date: 20140711
  Serious: Yes (Other)
  Sender: FDA-Public Use
  Company Number: PHHY2013GB139718

PATIENT
  Sex: Female

DRUGS (2)
  1. BISOPROLOL [Suspect]
     Indication: BLOOD PRESSURE
     Dosage: 2.5 MG, QD
     Dates: end: 201307
  2. BISOPROLOL [Suspect]
     Dosage: 5 MG, QD
     Dates: start: 201307, end: 20131119

REACTIONS (10)
  - Nephrolithiasis [Unknown]
  - Distractibility [Recovering/Resolving]
  - Vitamin B12 decreased [Unknown]
  - Weight increased [Unknown]
  - Chest pain [Unknown]
  - Hyperhidrosis [Unknown]
  - Contusion [Unknown]
  - Urticaria [Unknown]
  - Fatigue [Recovering/Resolving]
  - Malaise [Recovering/Resolving]
